FAERS Safety Report 25276407 (Version 1)
Quarter: 2025Q2

REPORT INFORMATION
  Report Type: Spontaneous
  Country: US (occurrence: US)
  Receive Date: 20250507
  Receipt Date: 20250507
  Transmission Date: 20250717
  Serious: No
  Sender: OTSUKA
  Company Number: US-MMM-Otsuka-ZNQFUM35

PATIENT
  Age: 45 Year
  Sex: Male

DRUGS (1)
  1. ABILIFY ASIMTUFII [Suspect]
     Active Substance: ARIPIPRAZOLE
     Indication: Schizoaffective disorder bipolar type
     Route: 065

REACTIONS (2)
  - Refusal of treatment by patient [Unknown]
  - Product use in unapproved indication [Unknown]
